FAERS Safety Report 4657954-8 (Version None)
Quarter: 2005Q2

REPORT INFORMATION
  Report Type: 
  Country: None (occurrence: None)
  Receive Date: 20050510
  Receipt Date: 20050323
  Transmission Date: 20051028
  Serious: Yes (Other)
  Sender: FDA-Public Use
  Company Number: 2005UW04570

PATIENT
  Age: 47 Year
  Sex: Female

DRUGS (9)
  1. ELAVIL [Suspect]
     Indication: MIGRAINE
     Route: 048
  2. ELAVIL [Suspect]
     Indication: MUSCLE TWITCHING
     Route: 048
  3. AVELOX [Suspect]
     Indication: PNEUMONIA
     Route: 048
     Dates: start: 20050305, end: 20050308
  4. AVELOX [Suspect]
     Indication: BRONCHITIS
     Route: 048
     Dates: start: 20050305, end: 20050308
  5. ADVAIR DISKUS 100/50 [Suspect]
     Indication: PNEUMONIA
     Dosage: 250/50
     Route: 055
     Dates: start: 20050305, end: 20050308
  6. ADVAIR DISKUS 100/50 [Suspect]
     Indication: BRONCHITIS
     Dosage: 250/50
     Route: 055
     Dates: start: 20050305, end: 20050308
  7. CALCIUM GLUCONATE [Concomitant]
  8. MAGNESIUM [Concomitant]
  9. ZINC [Concomitant]

REACTIONS (12)
  - APHASIA [None]
  - BLOOD PRESSURE SYSTOLIC INCREASED [None]
  - BRONCHITIS [None]
  - CONFUSIONAL STATE [None]
  - DYSPHEMIA [None]
  - FEELING JITTERY [None]
  - HEADACHE [None]
  - PNEUMONIA [None]
  - RED BLOOD CELL SEDIMENTATION RATE INCREASED [None]
  - VASCULITIS [None]
  - VIRAL INFECTION [None]
  - VISUAL DISTURBANCE [None]
